FAERS Safety Report 9133793 (Version 1)
Quarter: 2013Q1

REPORT INFORMATION
  Report Type: Spontaneous
  Country: GB (occurrence: GB)
  Receive Date: 20130303
  Receipt Date: 20130303
  Transmission Date: 20140127
  Serious: Yes (Other)
  Sender: FDA-Public Use
  Company Number: GB-TEVA-382031ISR

PATIENT
  Sex: Male
  Weight: 82.5 kg

DRUGS (2)
  1. COPAXONE [Suspect]
     Dosage: 20 MILLIGRAM DAILY;
     Route: 058
     Dates: start: 20121001
  2. CITALOPRAM [Suspect]
     Indication: DEPRESSED MOOD
     Dosage: 30 MILLIGRAM DAILY;
     Route: 048

REACTIONS (2)
  - Ejaculation disorder [Not Recovered/Not Resolved]
  - Erectile dysfunction [Not Recovered/Not Resolved]
